FAERS Safety Report 8365577-2 (Version None)
Quarter: 2012Q2

REPORT INFORMATION
  Report Type: 
  Country: None (occurrence: None)
  Receive Date: 20120516
  Receipt Date: 20120504
  Transmission Date: 20120825
  Serious: Yes (Death)
  Sender: FDA-Public Use
  Company Number: US-ROCHE-1047467

PATIENT
  Sex: Female

DRUGS (7)
  1. ZELBORAF [Suspect]
     Indication: MALIGNANT MELANOMA
     Route: 048
     Dates: start: 20111001, end: 20120219
  2. DEPAKOTE [Concomitant]
     Indication: MANIA
  3. DEPAKOTE [Concomitant]
     Indication: DEPRESSION
  4. SYNTHROID [Concomitant]
     Indication: HYPOTHYROIDISM
  5. BONIVA [Suspect]
     Indication: PRODUCT USED FOR UNKNOWN INDICATION
  6. FEMARA [Concomitant]
  7. THIORIDAZINE HCL [Concomitant]
     Indication: SCHIZOPHRENIA

REACTIONS (5)
  - ASTHENIA [None]
  - OEDEMA [None]
  - DIARRHOEA [None]
  - FALL [None]
  - METASTATIC MALIGNANT MELANOMA [None]
